FAERS Safety Report 23493225 (Version 1)
Quarter: 2024Q1

REPORT INFORMATION
  Report Type: Spontaneous
  Country: US (occurrence: US)
  Receive Date: 20240207
  Receipt Date: 20240207
  Transmission Date: 20240409
  Serious: Yes (Other)
  Sender: FDA-Public Use
  Company Number: US-SANDOZ-SDZ2023US075742

PATIENT
  Age: 10 Year
  Sex: Female

DRUGS (9)
  1. ILARIS [Suspect]
     Active Substance: CANAKINUMAB
     Dosage: 100 MG
     Route: 058
     Dates: start: 202009
  2. ILARIS [Suspect]
     Active Substance: CANAKINUMAB
     Dosage: 100 MG, MONTHLY
     Route: 065
     Dates: start: 202001
  3. ILARIS [Suspect]
     Active Substance: CANAKINUMAB
     Dosage: 150 MG, MONTHLY
     Route: 065
     Dates: start: 201906
  4. ILARIS [Suspect]
     Active Substance: CANAKINUMAB
     Dosage: 180 MG, MONTHLY
     Route: 065
     Dates: start: 201811
  5. ILARIS [Suspect]
     Active Substance: CANAKINUMAB
     Dosage: 220 MG, MONTHLY
     Route: 065
     Dates: start: 202206
  6. ILARIS [Suspect]
     Active Substance: CANAKINUMAB
     Indication: Still^s disease
     Dosage: 240 MG, Q4W MONTHLY
     Route: 058
     Dates: start: 20170804
  7. ILARIS [Suspect]
     Active Substance: CANAKINUMAB
     Dosage: 80 MG
     Route: 065
     Dates: start: 202108
  8. ILARIS [Suspect]
     Active Substance: CANAKINUMAB
     Dosage: 80 MG, MONTHLY
     Route: 065
     Dates: start: 202007
  9. METHOTREXATE [Suspect]
     Active Substance: METHOTREXATE
     Indication: Product used for unknown indication
     Route: 065

REACTIONS (5)
  - Still^s disease [Recovered/Resolved]
  - Condition aggravated [Recovered/Resolved]
  - Interleukin level increased [Unknown]
  - Liver function test increased [Unknown]
  - Arthralgia [Not Recovered/Not Resolved]

NARRATIVE: CASE EVENT DATE: 20171201
